FAERS Safety Report 8071533-4 (Version None)
Quarter: 2012Q1

REPORT INFORMATION
  Report Type: 
  Country: None (occurrence: None)
  Receive Date: 20120119
  Receipt Date: 20120109
  Transmission Date: 20120608
  Serious: Yes (Other)
  Sender: FDA-Public Use
  Company Number: 2012P1002691

PATIENT
  Age: 52 Year
  Sex: Male

DRUGS (1)
  1. RISPERIDONE [Suspect]
     Indication: SCHIZOPHRENIA
     Dosage: 2 MG;BID
     Dates: start: 20010101, end: 20100101

REACTIONS (8)
  - BLOODY DISCHARGE [None]
  - SKIN MASS [None]
  - ABSCESS [None]
  - PAIN [None]
  - HYPERPROLACTINAEMIA [None]
  - GYNAECOMASTIA [None]
  - GRANULOMA SKIN [None]
  - INFLAMMATION [None]
